FAERS Safety Report 15419641 (Version 1)
Quarter: 2018Q3

REPORT INFORMATION
  Report Type: Report from Study
  Country: US (occurrence: US)
  Receive Date: 20180924
  Receipt Date: 20180924
  Transmission Date: 20181010
  Serious: Yes (Hospitalization)
  Sender: FDA-Public Use
  Company Number: US-SA-2018SA252634

PATIENT
  Age: 86 Year
  Sex: Female

DRUGS (1)
  1. INSULIN GLARGINE [Suspect]
     Active Substance: INSULIN GLARGINE
     Indication: DIABETES MELLITUS
     Dosage: 55 U, QD
     Route: 058

REACTIONS (7)
  - Fall [Unknown]
  - Blood glucose fluctuation [Recovered/Resolved]
  - Urinary tract infection [Recovered/Resolved]
  - Respiratory disorder [Recovered/Resolved]
  - Chronic obstructive pulmonary disease [Recovered/Resolved]
  - Gait disturbance [Not Recovered/Not Resolved]
  - Wheezing [Recovered/Resolved]
